FAERS Safety Report 18755494 (Version 2)
Quarter: 2021Q1

REPORT INFORMATION
  Report Type: Spontaneous
  Country: CN (occurrence: CN)
  Receive Date: 20210119
  Receipt Date: 20210205
  Transmission Date: 20210419
  Serious: Yes (Other)
  Sender: FDA-Public Use
  Company Number: CN-GLAXOSMITHKLINE-CN2021GSK003877

PATIENT
  Age: 37 Year
  Sex: Male

DRUGS (5)
  1. DOLUTEGRAVIR [Suspect]
     Active Substance: DOLUTEGRAVIR
     Indication: HIV INFECTION
     Dosage: 50 MG, 1D
     Dates: start: 20190401, end: 20200328
  2. ZIDOVUDINE. [Suspect]
     Active Substance: ZIDOVUDINE
     Indication: HIV INFECTION
     Dosage: 300 MG, BID
     Dates: start: 20200328
  3. TENOFOVIR DISOPROXIL FUMARATE. [Suspect]
     Active Substance: TENOFOVIR DISOPROXIL FUMARATE
     Indication: HIV INFECTION
     Dosage: 300 MG, 1D
     Dates: start: 20190401, end: 20200328
  4. LOPINAVIR+RITONAVIR [Suspect]
     Active Substance: LOPINAVIR\RITONAVIR
     Indication: HIV INFECTION
     Dosage: 1 DF, BID
  5. LAMIVUDINE. [Suspect]
     Active Substance: LAMIVUDINE
     Indication: HIV INFECTION
     Dosage: 300 MG, 1D
     Dates: start: 20190401

REACTIONS (14)
  - Orbital myositis [Recovering/Resolving]
  - Myasthenia gravis [Recovering/Resolving]
  - Conjunctival hyperaemia [Recovering/Resolving]
  - Eye swelling [Recovering/Resolving]
  - Muscular weakness [Recovering/Resolving]
  - Vitreous opacities [Recovering/Resolving]
  - Facial paresis [Recovering/Resolving]
  - Exophthalmos [Recovering/Resolving]
  - Diplopia [Recovering/Resolving]
  - Eye movement disorder [Recovering/Resolving]
  - Eyelid ptosis [Recovering/Resolving]
  - Mastication disorder [Recovering/Resolving]
  - Ocular hyperaemia [Recovering/Resolving]
  - Immune reconstitution inflammatory syndrome [Recovering/Resolving]

NARRATIVE: CASE EVENT DATE: 2020
